FAERS Safety Report 13349711 (Version 1)
Quarter: 2017Q1

REPORT INFORMATION
  Report Type: Spontaneous
  Country: US (occurrence: US)
  Receive Date: 20170318
  Receipt Date: 20170318
  Transmission Date: 20170429
  Serious: Yes (Life-Threatening, Hospitalization, Disabling)
  Sender: FDA-Public Use
  Company Number: None

PATIENT
  Age: 54 Year
  Sex: Female
  Weight: 85.5 kg

DRUGS (7)
  1. LEVOFLOXACIN 750 MG. TORRENT P [Suspect]
     Active Substance: LEVOFLOXACIN
     Indication: SINUSITIS
     Dosage: ?          QUANTITY:1 TABLET(S);?
     Route: 048
     Dates: start: 20170224, end: 20170302
  2. VITAMIN C [Concomitant]
     Active Substance: ASCORBIC ACID
  3. ZOLOFT [Concomitant]
     Active Substance: SERTRALINE HYDROCHLORIDE
  4. TRAZODONE [Concomitant]
     Active Substance: TRAZODONE HYDROCHLORIDE
  5. LEVOTHYROXIN [Concomitant]
     Active Substance: LEVOTHYROXINE
  6. VITAMIN D3 [Concomitant]
     Active Substance: CHOLECALCIFEROL
  7. VITAMIN E [Concomitant]
     Active Substance: .ALPHA.-TOCOPHEROL

REACTIONS (13)
  - Muscle spasms [None]
  - Insomnia [None]
  - Joint stiffness [None]
  - Gait disturbance [None]
  - Activities of daily living impaired [None]
  - Pain in extremity [None]
  - Paraesthesia oral [None]
  - Hypersensitivity [None]
  - Joint range of motion decreased [None]
  - Joint swelling [None]
  - Chest discomfort [None]
  - Confusional state [None]
  - Arthralgia [None]

NARRATIVE: CASE EVENT DATE: 20170225
